FAERS Safety Report 9729010 (Version 2)
Quarter: 2014Q2

REPORT INFORMATION
  Report Type: Spontaneous
  Country: US (occurrence: US)
  Receive Date: 20131204
  Receipt Date: 20140418
  Transmission Date: 20141212
  Serious: Yes (Other)
  Sender: FDA-Public Use
  Company Number: US-PFIZER INC-2013345747

PATIENT
  Age: 64 Year
  Sex: Female
  Weight: 92.97 kg

DRUGS (7)
  1. LYRICA [Suspect]
     Indication: FIBROMYALGIA
     Dosage: 100 MG, 3X/DAY
  2. LYRICA [Suspect]
     Dosage: 50 MG, 3X/DAY
  3. METFORMIN HCL [Suspect]
     Indication: DIABETES MELLITUS
     Dosage: 500 MG, 2X/DAY
  4. VICTOZA [Suspect]
     Indication: DIABETES MELLITUS
     Dosage: UNK
  5. METOPROLOL [Concomitant]
     Indication: BLOOD PRESSURE ABNORMAL
     Dosage: 50 MG, 2X/DAY
  6. FLEXERIL [Concomitant]
     Indication: SLEEP DISORDER
     Dosage: 20 MG, DAILY
  7. FLEXERIL [Concomitant]
     Indication: FIBROMYALGIA

REACTIONS (3)
  - Weight decreased [Recovered/Resolved]
  - Drug intolerance [Unknown]
  - Glycosylated haemoglobin increased [Unknown]
